FAERS Safety Report 10610867 (Version 4)
Quarter: 2015Q1

REPORT INFORMATION
  Report Type: Spontaneous
  Country: RS (occurrence: RS)
  Receive Date: 20141126
  Receipt Date: 20150320
  Transmission Date: 20150720
  Serious: Yes (Death, Hospitalization, Other)
  Sender: FDA-Public Use
  Company Number: RS-ALEXION PHARMACEUTICALS INC.-A201404522

PATIENT

DRUGS (4)
  1. SOLIRIS [Suspect]
     Active Substance: ECULIZUMAB
     Indication: PAROXYSMAL NOCTURNAL HAEMOGLOBINURIA
     Dosage: 600 MG, QW
     Route: 042
     Dates: start: 20140929, end: 20141020
  2. FUROSEMID                          /00032601/ [Concomitant]
     Active Substance: FUROSEMIDE
     Indication: ANURIA
     Dosage: 3X40MG, UNK
     Route: 042
     Dates: start: 20141105, end: 20141113
  3. FUROSEMID                          /00032601/ [Concomitant]
     Active Substance: FUROSEMIDE
     Indication: MENINGITIS HAEMOPHILUS
     Dosage: 20 MG, 1 TO 6 DAILY
     Route: 065
     Dates: start: 20140618
  4. SOLIRIS [Suspect]
     Active Substance: ECULIZUMAB
     Dosage: 900 MG, QW
     Route: 042
     Dates: start: 20141027, end: 20141027

REACTIONS (16)
  - Oliguria [Not Recovered/Not Resolved]
  - Anuria [Fatal]
  - Pneumonia [Not Recovered/Not Resolved]
  - Shock [Fatal]
  - Blood bilirubin increased [Unknown]
  - Blood alkaline phosphatase increased [Unknown]
  - Shock [Unknown]
  - Hypotension [Not Recovered/Not Resolved]
  - Acute kidney injury [Fatal]
  - Platelet count decreased [Unknown]
  - Skin haemorrhage [Unknown]
  - Coma [Fatal]
  - Peritonitis [Not Recovered/Not Resolved]
  - Gamma-glutamyltransferase increased [Unknown]
  - Blood lactate dehydrogenase increased [Unknown]
  - Bilirubin conjugated increased [Unknown]

NARRATIVE: CASE EVENT DATE: 20140723
